FAERS Safety Report 15248218 (Version 1)
Quarter: 2018Q3

REPORT INFORMATION
  Report Type: Spontaneous
  Country: US (occurrence: US)
  Receive Date: 20180715
  Receipt Date: 20180715
  Transmission Date: 20181010
  Serious: Yes (Life-Threatening, Hospitalization, Disabling)
  Sender: FDA-Public Use
  Company Number: None

PATIENT
  Age: 31 Year
  Sex: Female
  Weight: 78.75 kg

DRUGS (1)
  1. VIBERZI [Suspect]
     Active Substance: ELUXADOLINE
     Indication: IRRITABLE BOWEL SYNDROME
     Dosage: ?          QUANTITY:1 TABLET(S);?
     Dates: start: 20160603, end: 20160604

REACTIONS (7)
  - Small fibre neuropathy [None]
  - Vitamin B12 deficiency [None]
  - Gastric disorder [None]
  - Pancreatitis [None]
  - Sphincter of Oddi dysfunction [None]
  - Vitamin D deficiency [None]
  - Malabsorption [None]

NARRATIVE: CASE EVENT DATE: 20160604
